FAERS Safety Report 5323360-6 (Version None)
Quarter: 2007Q2

REPORT INFORMATION
  Report Type: 
  Country: None (occurrence: None)
  Receive Date: 20070514
  Receipt Date: 20070509
  Transmission Date: 20071010
  Serious: Yes (Other)
  Sender: FDA-Public Use
  Company Number: PHNU2007DE01764

PATIENT
  Sex: Female

DRUGS (2)
  1. AREDIA [Suspect]
     Indication: OSTEONECROSIS
     Dosage: 90 MG, QMO
     Route: 042
     Dates: start: 20020901, end: 20050401
  2. AREDIA [Suspect]
     Dosage: 90 MG, EVERY 3 WEEKS
     Route: 042
     Dates: start: 20050401, end: 20070101

REACTIONS (1)
  - OSTEONECROSIS [None]
